FAERS Safety Report 23936594 (Version 1)
Quarter: 2024Q2

REPORT INFORMATION
  Report Type: Spontaneous
  Country: US (occurrence: US)
  Receive Date: 20240604
  Receipt Date: 20240604
  Transmission Date: 20240716
  Serious: No
  Sender: FDA-Public Use
  Company Number: US-SANOFI-02058559

PATIENT
  Age: 66 Year
  Sex: Female

DRUGS (3)
  1. LANTUS [Suspect]
     Active Substance: INSULIN GLARGINE
     Indication: Type 2 diabetes mellitus
     Dosage: 20 IU, QD
     Dates: start: 2024
  2. NOVORAPID [Suspect]
     Active Substance: INSULIN ASPART
  3. INSULIN ASPART [Concomitant]
     Active Substance: INSULIN ASPART

REACTIONS (3)
  - Headache [Unknown]
  - Intercepted product storage error [Unknown]
  - Product dispensing error [Unknown]

NARRATIVE: CASE EVENT DATE: 20240528
